FAERS Safety Report 15232466 (Version 1)
Quarter: 2018Q3

REPORT INFORMATION
  Report Type: Spontaneous
  Country: AR (occurrence: AR)
  Receive Date: 20180802
  Receipt Date: 20180802
  Transmission Date: 20181010
  Serious: Yes (Other)
  Sender: FDA-Public Use
  Company Number: AR-PFIZER INC-2018306968

PATIENT
  Age: 63 Year
  Sex: Male

DRUGS (2)
  1. IMIPENEM [Suspect]
     Active Substance: IMIPENEM
     Indication: ABDOMINAL SYMPTOM
     Dosage: UNK
  2. MEROPENEM. [Suspect]
     Active Substance: MEROPENEM
     Indication: ABDOMINAL SYMPTOM
     Dosage: UNK

REACTIONS (1)
  - Generalised tonic-clonic seizure [Unknown]
